FAERS Safety Report 11715218 (Version 1)
Quarter: 2015Q4

REPORT INFORMATION
  Report Type: Report from Study
  Country: GB (occurrence: GB)
  Receive Date: 20151109
  Receipt Date: 20151109
  Transmission Date: 20160304
  Serious: Yes (Other)
  Sender: FDA-Public Use
  Company Number: GB-ABBVIE-15K-167-1485325-00

PATIENT
  Sex: Female

DRUGS (1)
  1. HUMIRA [Suspect]
     Active Substance: ADALIMUMAB
     Indication: PRODUCT USED FOR UNKNOWN INDICATION
     Route: 058

REACTIONS (8)
  - Gastrooesophageal reflux disease [Recovering/Resolving]
  - Malaise [Recovering/Resolving]
  - Abdominal tenderness [Recovering/Resolving]
  - Abdominal distension [Recovering/Resolving]
  - Adverse drug reaction [Unknown]
  - Weight decreased [Recovering/Resolving]
  - Gastric disorder [Unknown]
  - Nausea [Recovering/Resolving]
